FAERS Safety Report 12136467 (Version 2)
Quarter: 2016Q1

REPORT INFORMATION
  Report Type: Report from Study
  Country: BR (occurrence: BR)
  Receive Date: 20160302
  Receipt Date: 20160316
  Transmission Date: 20160526
  Serious: Yes (Other)
  Sender: FDA-Public Use
  Company Number: PHHY2016BR027331

PATIENT
  Age: 50 Year
  Sex: Female
  Weight: 37 kg

DRUGS (3)
  1. SPIROLACTON [Concomitant]
     Indication: PRODUCT USED FOR UNKNOWN INDICATION
     Dosage: 1 DF, QD
     Route: 048
     Dates: start: 201511
  2. EXJADE [Suspect]
     Active Substance: DEFERASIROX
     Indication: SICKLE CELL ANAEMIA
     Dosage: 20 MG/KG (750 MG; 1 TABLET OF 500MG AND 1 TABLET OF 250MG), QD
     Route: 065
     Dates: start: 201511
  3. FOLIC ACID. [Concomitant]
     Active Substance: FOLIC ACID
     Indication: PRODUCT USED FOR UNKNOWN INDICATION
     Dosage: 1 DF, QD
     Route: 048
     Dates: start: 201511

REACTIONS (5)
  - Peripheral swelling [Unknown]
  - Confusional state [Unknown]
  - Hepatomegaly [Unknown]
  - Somnolence [Not Recovered/Not Resolved]
  - Ocular icterus [Unknown]

NARRATIVE: CASE EVENT DATE: 20160215
